FAERS Safety Report 20247873 (Version 1)
Quarter: 2021Q4

REPORT INFORMATION
  Report Type: Spontaneous
  Country: US (occurrence: US)
  Receive Date: 20211229
  Receipt Date: 20211229
  Transmission Date: 20220303
  Serious: No
  Sender: FDA-Public Use
  Company Number: US-SA-SAC20211226000032

PATIENT
  Age: 60 Year
  Sex: Female

DRUGS (3)
  1. AUBAGIO [Suspect]
     Active Substance: TERIFLUNOMIDE
     Indication: Multiple sclerosis
     Dosage: 14 MG, QD
     Route: 048
     Dates: start: 20210902
  2. IBUPROFEN [Concomitant]
     Active Substance: IBUPROFEN
  3. ACETAMINOPHEN\METHOCARBAMOL [Concomitant]
     Active Substance: ACETAMINOPHEN\METHOCARBAMOL

REACTIONS (5)
  - Peripheral swelling [Unknown]
  - Pruritus [Unknown]
  - Nausea [Unknown]
  - Dizziness [Unknown]
  - Back disorder [Unknown]
